FAERS Safety Report 11677811 (Version 2)
Quarter: 2015Q4

REPORT INFORMATION
  Report Type: Spontaneous
  Country: JP (occurrence: JP)
  Receive Date: 20151028
  Receipt Date: 20151105
  Transmission Date: 20160304
  Serious: Yes (Hospitalization, Other)
  Sender: FDA-Public Use
  Company Number: JP-WATSON-2015-12198

PATIENT
  Age: 26 Year
  Sex: Female
  Weight: 46 kg

DRUGS (5)
  1. SHIN SEDES [Suspect]
     Active Substance: ACETAMINOPHEN\APRONALIDE\CAFFEINE\ETHENZAMIDE
     Indication: PYREXIA
     Dosage: TWO TABLETS THREE TIMES (80 MG ACETAMINOPHEN, 200 MG ETHENZAMIDE, 30 MG ALLYLISOPROPYLACETYLUREA)
     Route: 065
  2. OSELTAMIVIR [Concomitant]
     Active Substance: OSELTAMIVIR
     Dosage: ONE TABLET
     Route: 065
  3. PIPERACILLIN AND TAZOBACTAM [Suspect]
     Active Substance: PIPERACILLIN SODIUM\TAZOBACTAM SODIUM
     Indication: URINARY TRACT INFECTION
     Dosage: UNKNOWN
     Route: 065
  4. CEFAZOLIN (UNKNOWN) [Suspect]
     Active Substance: CEFAZOLIN
     Indication: URINARY TRACT INFECTION
     Dosage: 1 G, TOTAL
     Route: 065
  5. CEFACLOR (UNKNOWN) [Suspect]
     Active Substance: CEFACLOR
     Indication: URINARY TRACT INFECTION
     Dosage: UNKNOWN
     Route: 048

REACTIONS (3)
  - Acute kidney injury [Recovered/Resolved]
  - Blood bilirubin increased [Unknown]
  - Renal tubular necrosis [Recovering/Resolving]
